FAERS Safety Report 10086160 (Version 1)
Quarter: 2014Q2

REPORT INFORMATION
  Report Type: Spontaneous
  Country: GB (occurrence: GB)
  Receive Date: 20140418
  Receipt Date: 20140418
  Transmission Date: 20141212
  Serious: Yes (Hospitalization)
  Sender: FDA-Public Use
  Company Number: GB-ASTRAZENECA-2014SE25269

PATIENT
  Age: 58 Year
  Sex: Male
  Weight: 96.5 kg

DRUGS (11)
  1. TICAGRELOR [Suspect]
     Indication: ACUTE CORONARY SYNDROME
     Route: 048
     Dates: start: 20140312, end: 20140328
  2. ASPIRIN [Concomitant]
  3. ATORVASTATIN [Concomitant]
  4. GLYCERYL TRINITRATE [Concomitant]
  5. NICOTINE [Concomitant]
  6. PARACETAMOL [Concomitant]
  7. RAMIPRIL [Concomitant]
  8. RANITIDINE [Concomitant]
  9. SALBUTAMOL [Concomitant]
  10. SERETIDE [Concomitant]
  11. SERTRALINE [Concomitant]

REACTIONS (3)
  - Telangiectasia [Unknown]
  - Dizziness [Unknown]
  - Haemorrhage [Recovering/Resolving]
